FAERS Safety Report 10435779 (Version 1)
Quarter: 2014Q3

REPORT INFORMATION
  Report Type: Spontaneous
  Country: US (occurrence: US)
  Receive Date: 20140908
  Receipt Date: 20140908
  Transmission Date: 20150326
  Serious: No
  Sender: FDA-Public Use
  Company Number: US-ELI_LILLY_AND_COMPANY-US201408010101

PATIENT
  Age: 53 Year
  Sex: Male

DRUGS (2)
  1. AXIRON [Suspect]
     Active Substance: TESTOSTERONE
     Dosage: 120 MG, QD
     Route: 061
  2. AXIRON [Suspect]
     Active Substance: TESTOSTERONE
     Indication: BLOOD TESTOSTERONE DECREASED
     Dosage: UNK, UNKNOWN
     Route: 061

REACTIONS (1)
  - Back pain [Unknown]
